FAERS Safety Report 23202455 (Version 1)
Quarter: 2023Q4

REPORT INFORMATION
  Report Type: Spontaneous
  Country: DE (occurrence: DE)
  Receive Date: 20231120
  Receipt Date: 20231120
  Transmission Date: 20240109
  Serious: Yes (Congenital Anomaly, Other)
  Sender: FDA-Public Use
  Company Number: DE-002147023-NVSC2022DE231241

PATIENT
  Sex: Male

DRUGS (1)
  1. IBUPROFEN [Suspect]
     Active Substance: IBUPROFEN
     Indication: Foetal exposure during pregnancy
     Dosage: MATERNAL DOSE: UNK (DAILY INTAKE)
     Route: 064

REACTIONS (6)
  - Patent ductus arteriosus [Unknown]
  - Atrial septal defect [Unknown]
  - Congenital pulmonary airway malformation [Unknown]
  - Pulmonary arterial hypertension [Unknown]
  - Bundle branch block right [Unknown]
  - Foetal exposure during pregnancy [Unknown]
